FAERS Safety Report 6335414-6 (Version None)
Quarter: 2009Q3

REPORT INFORMATION
  Report Type: 
  Country: None (occurrence: None)
  Receive Date: 20090831
  Receipt Date: 20090828
  Transmission Date: 20100115
  Serious: Yes (Death, Hospitalization, Other)
  Sender: FDA-Public Use
  Company Number: PHHY2009JP13377

PATIENT
  Sex: Male
  Weight: 64 kg

DRUGS (6)
  1. DIOVAN [Suspect]
     Indication: HYPERTENSION
     Dosage: 40 MG DAILY
     Route: 048
     Dates: start: 20080124, end: 20081219
  2. ATELEC [Concomitant]
     Indication: HYPERTENSION
     Dosage: 10 MG/DAY
     Route: 048
     Dates: start: 20061116, end: 20081219
  3. BUFFERIN [Concomitant]
     Dosage: 81MG/DAY
     Route: 048
     Dates: start: 20010531, end: 20081219
  4. MITIGLINIDE [Concomitant]
     Dosage: 30 MG/DAY
     Route: 048
     Dates: start: 20050526, end: 20081219
  5. HACHIMIJIO-GAN [Concomitant]
     Dosage: 7.5 G
     Route: 048
     Dates: end: 20081216
  6. TAKEPRON [Concomitant]
     Dosage: 15 MG/DAY
     Route: 048
     Dates: start: 20071129, end: 20081216

REACTIONS (4)
  - BLOOD CREATININE INCREASED [None]
  - BLOOD URIC ACID INCREASED [None]
  - CHOLANGITIS [None]
  - DEATH [None]
